FAERS Safety Report 9310971 (Version 4)
Quarter: 2013Q3

REPORT INFORMATION
  Report Type: Spontaneous
  Country: AT (occurrence: AT)
  Receive Date: 20130528
  Receipt Date: 20130717
  Transmission Date: 20140515
  Serious: Yes (Hospitalization)
  Sender: FDA-Public Use
  Company Number: AT-CELGENEUS-009-21880-13052237

PATIENT
  Age: 82 Year
  Sex: Male
  Weight: 78.4 kg

DRUGS (11)
  1. REVLIMID [Suspect]
     Indication: PLASMA CELL MYELOMA
     Route: 048
     Dates: start: 20121206
  2. MLN9708/PLACEBO [Suspect]
     Indication: PLASMA CELL MYELOMA
     Route: 048
     Dates: start: 20121206
  3. DEXAMETHASONE [Suspect]
     Indication: PLASMA CELL MYELOMA
     Route: 048
     Dates: start: 20121206
  4. LOVENOX [Concomitant]
     Indication: THROMBOSIS PROPHYLAXIS
     Dosage: 40 MILLIGRAM
     Route: 058
     Dates: start: 20121206
  5. TRAMAL [Concomitant]
     Indication: MUSCULOSKELETAL CHEST PAIN
     Route: 048
     Dates: start: 20121123
  6. TRAMAL [Concomitant]
     Indication: PAIN
  7. CAL-D-VITA [Concomitant]
     Indication: PROPHYLAXIS
     Dosage: 2 TABLET
     Route: 048
     Dates: start: 20121024
  8. CALCIUM [Concomitant]
     Indication: PROPHYLAXIS
     Dosage: 600 MILLIGRAM
     Route: 048
     Dates: start: 201110
  9. LOSARTAN [Concomitant]
     Indication: HYPERTENSION
     Route: 048
     Dates: start: 201207, end: 20121225
  10. OSPAMOX [Concomitant]
     Indication: PRODUCT USED FOR UNKNOWN INDICATION
     Dosage: 2000 MILLIGRAM
     Route: 048
     Dates: start: 20130220, end: 20130225
  11. OSPAMOX [Concomitant]
     Dosage: 2000 GRAM
     Route: 048
     Dates: start: 20130410, end: 20130414

REACTIONS (1)
  - Benign prostatic hyperplasia [Recovered/Resolved]
